FAERS Safety Report 8105405-3 (Version None)
Quarter: 2012Q1

REPORT INFORMATION
  Report Type: 
  Country: None (occurrence: None)
  Receive Date: 20120201
  Receipt Date: 20120130
  Transmission Date: 20120608
  Serious: Yes (Life-Threatening)
  Sender: FDA-Public Use
  Company Number: DE-B.I. PHARMACEUTICALS,INC./RIDGEFIELD-2012-DE-00324DE

PATIENT
  Sex: Male
  Weight: 130 kg

DRUGS (9)
  1. AMLODIPINE [Concomitant]
     Indication: HYPERTONIA
     Dosage: 5 MG
  2. ASPIRIN [Concomitant]
     Indication: PERIPHERAL ARTERIAL OCCLUSIVE DISEASE
  3. SOLIFENACIN SUCCINATE [Concomitant]
     Indication: HYPERTONIA
     Dosage: 5 MG
     Dates: start: 20110101
  4. IRBESARTAN [Concomitant]
     Indication: HYPERTONIA
     Dosage: 1 ANZ
  5. TORSEMIDE [Concomitant]
     Indication: HYPERTONIA
     Dosage: 10 MG
  6. ASPIRIN [Concomitant]
     Indication: CORONARY ARTERY DISEASE
     Dosage: 100 MG
     Dates: start: 20120105, end: 20120123
  7. PRADAXA [Suspect]
     Indication: ATRIAL FIBRILLATION
     Dosage: 220 MG
     Dates: start: 20120105, end: 20120123
  8. DILTIAZEM HCL [Concomitant]
     Indication: HYPERTONIA
     Dosage: 180 MG
     Dates: start: 20110101
  9. FLUTICASONE PROPIONATE/SALMETEROL [Concomitant]
     Indication: CHRONIC OBSTRUCTIVE PULMONARY DISEASE
     Dosage: 2 ANZ

REACTIONS (1)
  - CEREBRAL INFARCTION [None]
